FAERS Safety Report 5112930-6 (Version None)
Quarter: 2006Q3

REPORT INFORMATION
  Report Type: 
  Country: None (occurrence: None)
  Receive Date: 20060921
  Receipt Date: 20060921
  Transmission Date: 20061208
  Serious: Yes (Hospitalization)
  Sender: FDA-Public Use
  Company Number: None

PATIENT
  Sex: Male
  Weight: 87 kg

DRUGS (2)
  1. VANCOMYCIN [Suspect]
     Indication: PREOPERATIVE CARE
     Dosage: 1.25 MG IV Q12H
     Route: 042
     Dates: start: 20060524, end: 20060526
  2. GENTAMICIN [Suspect]
     Indication: PREOPERATIVE CARE
     Dosage: 400 MG IV DAILY
     Route: 042
     Dates: start: 20060524, end: 20060526

REACTIONS (4)
  - ABNORMAL FAECES [None]
  - CLOSTRIDIAL INFECTION [None]
  - DIARRHOEA [None]
  - FAECES DISCOLOURED [None]
